FAERS Safety Report 4568159-3 (Version None)
Quarter: 2005Q1

REPORT INFORMATION
  Report Type: 
  Country: None (occurrence: None)
  Receive Date: 20050131
  Receipt Date: 20040921
  Transmission Date: 20050727
  Serious: Yes (Hospitalization)
  Sender: FDA-Public Use
  Company Number: MSTR-NO-0108C-0111

PATIENT
  Age: 46 Year
  Sex: Female
  Weight: 44 kg

DRUGS (27)
  1. METASTRON [Suspect]
     Dosage: 2 MBQ/KG, SINGLE DOSE, I.V.
     Route: 042
     Dates: start: 20010611, end: 20010611
  2. DICLOFENAC SODIUM [Concomitant]
  3. NAPROSYN [Concomitant]
  4. IOXOPROFEN SODIUM [Concomitant]
  5. MORPHINE SULFATE [Concomitant]
  6. MISOPROSOTOL [Concomitant]
  7. FAMOTIDINE [Concomitant]
  8. ANASTROZOLE [Concomitant]
  9. DOMPERIDONE [Concomitant]
  10. SENNOSIDE [Concomitant]
  11. DICLOFENAC SODIUM [Concomitant]
  12. REBAMIPIDE [Concomitant]
  13. CEFODOXIME PTOXETIL [Concomitant]
  14. FLOMOXEF SODIUM [Concomitant]
  15. RANITIDINE HYDROCHLORIDE [Concomitant]
  16. GLUCOSE ACETATED RINGER'S SOLUTION [Concomitant]
  17. LEVOFLOXACIN [Concomitant]
  18. FERROUS CITRATE [Concomitant]
  19. SOLDEM 3A [Concomitant]
  20. VITAMIN B COMPLEX CAP [Concomitant]
  21. IMIPENEM, CILASTATIN SODIUM [Concomitant]
  22. SODIUM PICOSULFATE [Concomitant]
  23. MORPHINE SULFATE [Concomitant]
  24. DOXIFLURIDINE [Concomitant]
  25. MEDROXYPROGESTERONE ACETATE [Concomitant]
  26. CEFEPIME DIHYDROCHLORIDE [Concomitant]
  27. MAGNESIUM OXIDE [Concomitant]

REACTIONS (20)
  - ARTHRALGIA [None]
  - BLOOD ALKALINE PHOSPHATASE INCREASED [None]
  - BLOOD IRON DECREASED [None]
  - BODY TEMPERATURE INCREASED [None]
  - BONE CANCER METASTATIC [None]
  - CHOLECYSTITIS [None]
  - DIZZINESS [None]
  - DRUG INEFFECTIVE [None]
  - INFECTION [None]
  - IRON DEFICIENCY ANAEMIA [None]
  - LEUKOCYTOSIS [None]
  - MALIGNANT NEOPLASM PROGRESSION [None]
  - MALNUTRITION [None]
  - MASS [None]
  - OSTEOLYSIS [None]
  - PAIN [None]
  - STRESS [None]
  - UPPER GASTROINTESTINAL HAEMORRHAGE [None]
  - WHITE BLOOD CELL COUNT INCREASED [None]
  - X-RAY OF PELVIS AND HIP ABNORMAL [None]
